FAERS Safety Report 9125066 (Version 1)
Quarter: 2013Q1

REPORT INFORMATION
  Report Type: Spontaneous
  Country: US (occurrence: US)
  Receive Date: 20130117
  Receipt Date: 20130117
  Transmission Date: 20140127
  Serious: Yes (Other)
  Sender: FDA-Public Use
  Company Number: US-PFIZER INC-2013021214

PATIENT
  Age: 48 Year
  Sex: Female
  Weight: 95.24 kg

DRUGS (11)
  1. LYRICA [Suspect]
     Indication: NEURALGIA
     Dosage: 75 MG, 5X/DAY
     Route: 048
     Dates: start: 2012
  2. SYNTHROID [Concomitant]
     Dosage: UNK, 1X/DAY
  3. JANUMET XR [Concomitant]
     Dosage: 50/1000 MG, UNK
  4. LEXAPRO [Concomitant]
     Dosage: 20 MG, UNK
  5. OXYCONTIN [Concomitant]
     Dosage: 30 MG, UNK
  6. FISH OIL [Concomitant]
     Dosage: UNK
  7. FUROSEMIDE [Concomitant]
     Dosage: 20 MG, UNK
  8. OMEPRAZOLE [Concomitant]
     Dosage: 40 MG, 1X/DAY
  9. ZOLPIDEM [Concomitant]
     Dosage: 10 MG, 1X/DAY
  10. GLYBURIDE [Concomitant]
     Dosage: 5 MG, 1X/DAY
  11. METOPROLOL [Concomitant]
     Dosage: UNK, 2X/DAY

REACTIONS (5)
  - Anaemia [Not Recovered/Not Resolved]
  - Platelet count decreased [Not Recovered/Not Resolved]
  - Red blood cell count decreased [Not Recovered/Not Resolved]
  - Fatigue [Not Recovered/Not Resolved]
  - Somnolence [Not Recovered/Not Resolved]
